FAERS Safety Report 16301275 (Version 2)
Quarter: 2019Q2

REPORT INFORMATION
  Report Type: Report from Study
  Country: US (occurrence: US)
  Receive Date: 20190510
  Receipt Date: 20190620
  Transmission Date: 20190711
  Serious: Yes (Hospitalization)
  Sender: FDA-Public Use
  Company Number: US-ACTELION-A-US2019-188974

PATIENT
  Age: 72 Year
  Sex: Female

DRUGS (1)
  1. OPSUMIT [Suspect]
     Active Substance: MACITENTAN
     Indication: PULMONARY ARTERIAL HYPERTENSION
     Dosage: 10 MG, QD
     Route: 048
     Dates: start: 2019

REACTIONS (5)
  - Dyspnoea [Recovering/Resolving]
  - Fatigue [Unknown]
  - Weight decreased [Unknown]
  - Hospitalisation [Unknown]
  - Nasal congestion [Unknown]

NARRATIVE: CASE EVENT DATE: 201905
